FAERS Safety Report 26119250 (Version 1)
Quarter: 2025Q4

REPORT INFORMATION
  Report Type: Report from Study
  Country: US (occurrence: US)
  Receive Date: 20251204
  Receipt Date: 20251204
  Transmission Date: 20260118
  Serious: Yes (Other)
  Sender: TAKEDA
  Company Number: US-TAKEDA-2025TUS106196

PATIENT
  Age: 81 Year
  Sex: Male

DRUGS (5)
  1. VEDOLIZUMAB [Suspect]
     Active Substance: VEDOLIZUMAB
     Indication: Proctitis ulcerative
     Dosage: 108 MILLIGRAM
  2. VEDOLIZUMAB [Suspect]
     Active Substance: VEDOLIZUMAB
  3. VEDOLIZUMAB [Suspect]
     Active Substance: VEDOLIZUMAB
  4. VEDOLIZUMAB [Suspect]
     Active Substance: VEDOLIZUMAB
  5. VEDOLIZUMAB [Suspect]
     Active Substance: VEDOLIZUMAB
     Indication: Proctitis ulcerative
     Dosage: UNK

REACTIONS (33)
  - Gastritis haemorrhagic [Unknown]
  - Cataract [Unknown]
  - Diverticulitis [Unknown]
  - Myocardial infarction [Unknown]
  - Clostridium difficile colitis [Unknown]
  - Rectal haemorrhage [Unknown]
  - Melaena [Unknown]
  - Colitis ulcerative [Unknown]
  - Intestinal ischaemia [Unknown]
  - Coronary artery disease [Unknown]
  - Abdominal distension [Unknown]
  - Product dose omission issue [Unknown]
  - Abdominal pain [Unknown]
  - Nausea [Unknown]
  - Faeces discoloured [Unknown]
  - Haemorrhage [Unknown]
  - Large intestine polyp [Unknown]
  - Gastrooesophageal reflux disease [Unknown]
  - Diverticulum intestinal [Unknown]
  - Iron deficiency anaemia [Unknown]
  - Anaemia [Unknown]
  - Abdominal pain upper [Unknown]
  - Haemorrhoids [Unknown]
  - Peripheral arterial occlusive disease [Unknown]
  - Bradycardia [Unknown]
  - Large intestine benign neoplasm [Unknown]
  - Colorectal adenoma [Unknown]
  - Hiatus hernia [Unknown]
  - Cardiac disorder [Unknown]
  - Blood cholesterol increased [Unknown]
  - Hypertension [Unknown]
  - Renal disorder [Unknown]
  - Abscess [Unknown]
